FAERS Safety Report 5237364-5 (Version None)
Quarter: 2007Q1

REPORT INFORMATION
  Report Type: 
  Country: None (occurrence: None)
  Receive Date: 20070213
  Receipt Date: 20070201
  Transmission Date: 20070707
  Serious: Yes (Hospitalization)
  Sender: FDA-Public Use
  Company Number: HQWYE992505AUG04

PATIENT
  Sex: Female
  Weight: 51 kg

DRUGS (4)
  1. ARTANE [Suspect]
     Indication: PARKINSON'S DISEASE
     Route: 048
     Dates: start: 19960410, end: 19960618
  2. SYMMETREL [Interacting]
     Indication: PARKINSON'S DISEASE
     Route: 048
     Dates: start: 19951206, end: 19960710
  3. PARLODEL [Interacting]
     Indication: PARKINSON'S DISEASE
     Route: 048
     Dates: start: 19950501, end: 19960305
  4. PARLODEL [Interacting]
     Route: 048
     Dates: start: 19960306, end: 19960710

REACTIONS (2)
  - DRUG INTERACTION [None]
  - TORTICOLLIS [None]
